FAERS Safety Report 20047278 (Version 1)
Quarter: 2021Q4

REPORT INFORMATION
  Report Type: Spontaneous
  Country: JP (occurrence: JP)
  Receive Date: 20211109
  Receipt Date: 20211109
  Transmission Date: 20220303
  Serious: Yes (Other)
  Sender: FDA-Public Use
  Company Number: JP-SUN PHARMACEUTICAL INDUSTRIES LTD-2019R1-226223

PATIENT
  Age: 31 Month
  Sex: Female

DRUGS (4)
  1. MESALAMINE [Suspect]
     Active Substance: MESALAMINE
     Indication: Colitis ulcerative
     Dosage: UNK
     Route: 065
  2. TACROLIMUS [Suspect]
     Active Substance: TACROLIMUS
     Indication: Colitis ulcerative
     Dosage: UNK ((3 YEARS 4 MONTHS)
     Route: 065
  3. AZATHIOPRINE [Suspect]
     Active Substance: AZATHIOPRINE
     Indication: Colitis ulcerative
     Dosage: 2 MILLIGRAM/KILOGRAM, DAILY (2 YEARS 11 MONTHS)
     Route: 065
  4. PREDNISOLONE [Concomitant]
     Active Substance: PREDNISOLONE
     Indication: Colitis ulcerative
     Dosage: UNK(2 YEARS 8 MONTHS TO 3 YEARS 3 MONTHS)
     Route: 065

REACTIONS (3)
  - Drug intolerance [Unknown]
  - Renal impairment [Not Recovered/Not Resolved]
  - Lymphoma [Recovered/Resolved]
